FAERS Safety Report 9439838 (Version 2)
Quarter: 2014Q1

REPORT INFORMATION
  Report Type: Spontaneous
  Country: US (occurrence: US)
  Receive Date: 20130805
  Receipt Date: 20140206
  Transmission Date: 20141002
  Serious: Yes (Hospitalization)
  Sender: FDA-Public Use
  Company Number: US-SANOFI-AVENTIS-2013SA077641

PATIENT
  Age: 79 Year
  Sex: Male
  Weight: 68.03 kg

DRUGS (4)
  1. ORENCIA [Concomitant]
     Indication: ARTHRITIS
     Route: 065
     Dates: start: 20040201
  2. LANTUS SOLOSTAR [Suspect]
     Indication: TYPE 2 DIABETES MELLITUS
     Dosage: DOSE:8 UNIT(S)
     Route: 058
  3. LANTUS SOLOSTAR [Suspect]
     Indication: TYPE 2 DIABETES MELLITUS
     Dosage: DOSE:18 UNIT(S)
     Route: 058
     Dates: start: 20120705
  4. SOLOSTAR [Concomitant]

REACTIONS (5)
  - Cholesteatoma [Unknown]
  - Hearing impaired [Unknown]
  - Visual acuity reduced [Not Recovered/Not Resolved]
  - Glycosylated haemoglobin increased [Unknown]
  - Weight increased [Unknown]
